FAERS Safety Report 9502727 (Version 1)
Quarter: 2013Q3

REPORT INFORMATION
  Report Type: Spontaneous
  Country: CA (occurrence: CA)
  Receive Date: 20130906
  Receipt Date: 20130906
  Transmission Date: 20140515
  Serious: Yes (Other)
  Sender: FDA-Public Use
  Company Number: CA-ROCHE-1270954

PATIENT
  Age: 57 Year
  Sex: Female

DRUGS (7)
  1. XELODA [Suspect]
     Indication: PRODUCT USED FOR UNKNOWN INDICATION
     Route: 065
  2. TYKERB [Suspect]
     Indication: PRODUCT USED FOR UNKNOWN INDICATION
     Route: 048
  3. LOMOTIL (CANADA) [Concomitant]
     Route: 065
  4. METOCLOPRAMIDE [Concomitant]
  5. SLOW K [Concomitant]
     Route: 065
  6. VITAMIN B COMPLEX [Concomitant]
  7. ZOFRAN [Concomitant]

REACTIONS (2)
  - Palmar-plantar erythrodysaesthesia syndrome [Recovered/Resolved]
  - Quality of life decreased [Recovered/Resolved]
